FAERS Safety Report 23874404 (Version 4)
Quarter: 2024Q2

REPORT INFORMATION
  Report Type: Spontaneous
  Country: US (occurrence: US)
  Receive Date: 20240520
  Receipt Date: 20240624
  Transmission Date: 20240716
  Serious: No
  Sender: FDA-Public Use
  Company Number: US-PFIZER INC-202400108780

PATIENT
  Age: 16 Year
  Sex: Male

DRUGS (2)
  1. GENOTROPIN [Suspect]
     Active Substance: SOMATROPIN
     Indication: Hypothalamo-pituitary disorder
     Dosage: 2.5 MG, DAILY, IN HIS THIGH OR ABDOMEN
     Dates: start: 20240515
  2. GENOTROPIN [Suspect]
     Active Substance: SOMATROPIN
     Indication: Growth hormone deficiency

REACTIONS (6)
  - Injection site haemorrhage [Recovered/Resolved]
  - Device issue [Unknown]
  - Drug dose omission by device [Unknown]
  - Device use error [Unknown]
  - Device mechanical issue [Unknown]
  - Device breakage [Unknown]

NARRATIVE: CASE EVENT DATE: 20240515
